FAERS Safety Report 8220821-7 (Version None)
Quarter: 2012Q1

REPORT INFORMATION
  Report Type: 
  Country: None (occurrence: None)
  Receive Date: 20120307
  Receipt Date: 20100309
  Transmission Date: 20120608
  Serious: No
  Sender: FDA-Public Use
  Company Number: PHHY2010US14508

PATIENT
  Age: 63 Year
  Sex: Male

DRUGS (1)
  1. AFINITOR [Suspect]
     Dosage: 10 MG DAILY, ORAL
     Route: 048
     Dates: start: 20100119, end: 20100216

REACTIONS (3)
  - URTICARIA [None]
  - EYE PRURITUS [None]
  - LIMB INJURY [None]
